FAERS Safety Report 4316585-X (Version None)
Quarter: 2004Q1

REPORT INFORMATION
  Report Type: 
  Country: None (occurrence: None)
  Receive Date: 20040312
  Receipt Date: 20040309
  Transmission Date: 20041129
  Serious: Yes (Death)
  Sender: FDA-Public Use
  Company Number: 04-01-0181

PATIENT
  Age: 53 Year
  Sex: Male
  Weight: 52.1637 kg

DRUGS (5)
  1. CLOZAPINE [Suspect]
     Indication: SCHIZOPHRENIA, PARANOID TYPE
     Dosage: 300MG QHS ORAL
     Route: 048
     Dates: start: 19981201, end: 20031201
  2. FLOVENT [Concomitant]
  3. ATROVENT [Concomitant]
  4. THEOPHYLLINE [Concomitant]
  5. TOPROL-XL [Concomitant]

REACTIONS (3)
  - HYPOXIA [None]
  - PULMONARY EMBOLISM [None]
  - RESPIRATORY FAILURE [None]
